FAERS Safety Report 9643165 (Version 1)
Quarter: 2013Q4

REPORT INFORMATION
  Report Type: Report from Study
  Country: BR (occurrence: BR)
  Receive Date: 20131024
  Receipt Date: 20131024
  Transmission Date: 20140711
  Serious: Yes (Life-Threatening)
  Sender: FDA-Public Use
  Company Number: PHHY2013BR119728

PATIENT
  Age: 94 Year
  Sex: Female

DRUGS (3)
  1. DIOVAN [Suspect]
     Indication: HYPERTENSION
     Dosage: 160 MG, TID
  2. DILTIAZEM [Suspect]
     Indication: HYPERTENSION
     Dosage: 160 MG, BID
  3. OSTEO BI-FLEX (OSTEO BI-FLEX) [Suspect]
     Indication: FATIGUE
     Dosage: 1500 MG, QD

REACTIONS (8)
  - Fall [Recovering/Resolving]
  - Intervertebral disc protrusion [Recovering/Resolving]
  - Lower limb fracture [Recovering/Resolving]
  - Upper limb fracture [Recovering/Resolving]
  - Spinal fracture [Recovering/Resolving]
  - Pain in extremity [Recovering/Resolving]
  - Pain [Recovering/Resolving]
  - Movement disorder [Recovering/Resolving]
